FAERS Safety Report 9276229 (Version 4)
Quarter: 2013Q3

REPORT INFORMATION
  Report Type: Spontaneous
  Country: US (occurrence: None)
  Receive Date: 20130501
  Receipt Date: 20130916
  Transmission Date: 20140515
  Serious: Yes (Other)
  Sender: FDA-Public Use
  Company Number: JPI-P-031342

PATIENT
  Age: 41 Year
  Sex: Male
  Weight: 99.34 kg

DRUGS (9)
  1. XYREM [Suspect]
     Indication: NARCOLEPSY
     Dosage: 4.5 GM (2.25 GM, 2 IN 1 D), ORAL
     Route: 048
     Dates: start: 20130404, end: 201304
  2. XYREM [Suspect]
     Indication: SOMNOLENCE
     Dosage: 4.5 GM (2.25 GM, 2 IN 1 D), ORAL
     Route: 048
     Dates: start: 20130404, end: 201304
  3. ARIPIPRAZOLE [Concomitant]
  4. VENLAFAXINE HYDROCHLORIDE [Concomitant]
  5. TRIHEXYPHENIDYL HYDROCHLORIDE [Concomitant]
  6. SIMVASTATIN [Concomitant]
  7. LISINOPRIL [Concomitant]
  8. VITAMIN D [Concomitant]
  9. FISH OIL/OMEGA 3 [Concomitant]

REACTIONS (6)
  - Loss of consciousness [None]
  - Head injury [None]
  - Initial insomnia [None]
  - Treatment noncompliance [None]
  - Fall [None]
  - Medication error [None]
